FAERS Safety Report 21836486 (Version 1)
Quarter: 2023Q1

REPORT INFORMATION
  Report Type: Spontaneous
  Country: GB (occurrence: GB)
  Receive Date: 20230109
  Receipt Date: 20230109
  Transmission Date: 20230418
  Serious: No
  Sender: FDA-Public Use
  Company Number: None

PATIENT
  Age: 2 Year
  Sex: Male
  Weight: 10 kg

DRUGS (8)
  1. IBUPROFEN [Suspect]
     Active Substance: IBUPROFEN
     Indication: Product used for unknown indication
     Dosage: 100 MG/5ML (ORAL SUSPENSION)
     Route: 048
     Dates: start: 20221013
  2. CALAMINE [Concomitant]
     Active Substance: CALAMINE\FERRIC OXIDE RED\ZINC OXIDE
     Indication: Product used for unknown indication
     Dosage: UNK, (APPLY 2-3X DAILY)
     Route: 065
     Dates: start: 20221013
  3. CHLORPHENIRAMINE MALEATE [Concomitant]
     Active Substance: CHLORPHENIRAMINE MALEATE
     Indication: Product used for unknown indication
     Dosage: 2.5 MILLILITER (TO BE TAKEN TWICE DAILY AS REQD)
     Route: 065
     Dates: start: 20220201
  4. CLARITHROMYCIN [Concomitant]
     Active Substance: CLARITHROMYCIN
     Indication: Product used for unknown indication
     Dosage: 2.5 MILLILITER, BID (TWICE DAILY FOR 7 DAYS)
     Route: 065
     Dates: start: 20221013
  5. DERMOL [Concomitant]
     Active Substance: BENZALKONIUM CHLORIDE\CHLORHEXIDINE HYDROCHLORIDE\ISOPROPYL MYRISTATE\PARAFFIN
     Indication: Product used for unknown indication
     Dosage: UNK, (TO BE USED A SOAP SUBSTITUTE)
     Route: 065
     Dates: start: 20210212
  6. MINERAL OIL\PETROLATUM\WAX, EMULSIFYING [Concomitant]
     Active Substance: MINERAL OIL\PETROLATUM\WAX, EMULSIFYING
     Indication: Product used for unknown indication
     Dosage: UNK, BID, (APPLY TWICE DAILY AS MOISTURISER)
     Route: 065
     Dates: start: 20210212
  7. FUCIDIN [Concomitant]
     Active Substance: FUSIDATE SODIUM
     Indication: Product used for unknown indication
     Dosage: UNK,(APPLY SPARINGLY TWICE DAILY FOR 7 DAYS IF YELL)
     Route: 065
     Dates: start: 20210212
  8. HYDROCORTISONE [Concomitant]
     Active Substance: HYDROCORTISONE
     Indication: Product used for unknown indication
     Dosage: UNK, BID, (APPLY TWICE DAILY TO FACE,ARMS/LEGS AND TRUNK A)
     Route: 065
     Dates: start: 20210212

REACTIONS (1)
  - Rash [Recovering/Resolving]

NARRATIVE: CASE EVENT DATE: 20221013
